FAERS Safety Report 19795827 (Version 1)
Quarter: 2021Q3

REPORT INFORMATION
  Report Type: Spontaneous
  Country: US (occurrence: US)
  Receive Date: 20210907
  Receipt Date: 20210907
  Transmission Date: 20211014
  Serious: No
  Sender: FDA-Public Use
  Company Number: US-SUN PHARMACEUTICAL INDUSTRIES LTD-2021R1-304428

PATIENT
  Age: 80 Year
  Sex: Female

DRUGS (2)
  1. CEQUA [Suspect]
     Active Substance: CYCLOSPORINE
     Dosage: 2 DROPS IN EACH EYE TWICE A DAY
     Route: 047
     Dates: start: 20210710
  2. CEQUA [Suspect]
     Active Substance: CYCLOSPORINE
     Indication: DRY EYE
     Dosage: UNK
     Route: 047
     Dates: start: 20210709

REACTIONS (2)
  - Product administration interrupted [Unknown]
  - Eye irritation [Unknown]

NARRATIVE: CASE EVENT DATE: 2021
